FAERS Safety Report 22247880 (Version 1)
Quarter: 2023Q2

REPORT INFORMATION
  Report Type: Spontaneous
  Country: US (occurrence: US)
  Receive Date: 20230425
  Receipt Date: 20230425
  Transmission Date: 20230722
  Serious: Yes (Other)
  Sender: FDA-Public Use
  Company Number: US-SA-SAC20230421000841

PATIENT
  Age: 80 Year

DRUGS (1)
  1. GOLD BOND MEDICATED ORIGINAL STRENGTH BODY [Suspect]
     Active Substance: MENTHOL
     Dosage: UNK

REACTIONS (12)
  - Mesothelioma malignant [Unknown]
  - Occupational exposure to product [Unknown]
  - Pain [Unknown]
  - Discomfort [Unknown]
  - Weight decreased [Unknown]
  - Decreased appetite [Unknown]
  - Fatigue [Unknown]
  - Lethargy [Unknown]
  - Somnolence [Unknown]
  - Dyspnoea [Unknown]
  - Dysphagia [Unknown]
  - Emotional distress [Unknown]

NARRATIVE: CASE EVENT DATE: 20221220
